FAERS Safety Report 7002776-6 (Version None)
Quarter: 2010Q3

REPORT INFORMATION
  Report Type: 
  Country: None (occurrence: None)
  Receive Date: 20100920
  Receipt Date: 20100701
  Transmission Date: 20110219
  Serious: No
  Sender: FDA-Public Use
  Company Number: US-ASTRAZENECA-2007UW21504

PATIENT
  Age: 44 Year
  Sex: Male
  Weight: 120.2 kg

DRUGS (12)
  1. SEROQUEL [Suspect]
     Indication: DEPRESSION
     Dosage: 25 MG TO 50 MG
     Route: 048
     Dates: start: 20030925, end: 20040211
  2. SEROQUEL [Suspect]
     Indication: INSOMNIA
     Dosage: 25 MG TO 50 MG
     Route: 048
     Dates: start: 20030925, end: 20040211
  3. SEROQUEL [Suspect]
     Indication: ANXIETY
     Dosage: 25 MG TO 50 MG
     Route: 048
     Dates: start: 20030925, end: 20040211
  4. SEROQUEL [Suspect]
     Indication: MOOD SWINGS
     Dosage: 25 MG TO 50 MG
     Route: 048
     Dates: start: 20030925, end: 20040211
  5. AMBIEN [Concomitant]
     Indication: SLEEP DISORDER
     Route: 048
     Dates: start: 20030925
  6. WELLBUTRIN SR [Concomitant]
     Dosage: 100-300 MG
     Dates: start: 20030925
  7. ATIVAN [Concomitant]
     Dosage: 0.5-1 MG
     Route: 048
     Dates: start: 20030925
  8. LISINOPRIL [Concomitant]
     Indication: BLOOD PRESSURE
     Dates: start: 20040915
  9. GLIPIZIDE [Concomitant]
     Indication: BLOOD GLUCOSE INCREASED
     Dosage: 5-10 MG
     Dates: start: 20061219
  10. OMEPRAZOLE [Concomitant]
     Indication: GASTROOESOPHAGEAL REFLUX DISEASE
     Dosage: 20 MG TWO TIMES A DAY AS NEEDED
     Dates: start: 20061219
  11. XANAX [Concomitant]
     Indication: ANXIETY
     Dosage: 0.25 MG TWO TIMES A DAY AS NEEDED
     Dates: start: 20061219
  12. ABILIFY [Concomitant]

REACTIONS (4)
  - CHEST PAIN [None]
  - DIABETIC COMPLICATION [None]
  - GASTROINTESTINAL DISORDER [None]
  - TYPE 2 DIABETES MELLITUS [None]
